FAERS Safety Report 4429227-X (Version None)
Quarter: 2004Q3

REPORT INFORMATION
  Report Type: 
  Country: None (occurrence: None)
  Receive Date: 20040819
  Receipt Date: 20040420
  Transmission Date: 20050211
  Serious: Yes (Hospitalization)
  Sender: FDA-Public Use
  Company Number: DE-JNJFOC-20040404543

PATIENT
  Sex: Female
  Weight: 70 kg

DRUGS (9)
  1. LYRINEL XL [Suspect]
     Route: 049
     Dates: start: 20040304, end: 20040416
  2. METOPROLOL TARTRATE [Concomitant]
     Indication: HYPERTENSION
     Route: 049
  3. TIKLYD [Concomitant]
     Route: 049
  4. ATORVASTATIN CALCIUM [Concomitant]
     Indication: HYPERCHOLESTEROLAEMIA
     Route: 049
  5. ADALAT CC [Concomitant]
     Indication: HYPERTENSION
     Route: 049
  6. ASPIRIN [Concomitant]
  7. VALPROIC ACID [Concomitant]
  8. AMLODIPIN [Concomitant]
  9. TELMISARTAN [Concomitant]

REACTIONS (1)
  - IDIOPATHIC THROMBOCYTOPENIC PURPURA [None]
